FAERS Safety Report 15080037 (Version 5)
Quarter: 2023Q2

REPORT INFORMATION
  Report Type: Spontaneous
  Country: FR (occurrence: FR)
  Receive Date: 20180627
  Receipt Date: 20230413
  Transmission Date: 20230722
  Serious: Yes (Hospitalization, Disabling, Other)
  Sender: FDA-Public Use
  Company Number: FR-009507513-1612FRA014769

PATIENT
  Age: 18 Year
  Sex: Female
  Weight: 62 kg

DRUGS (11)
  1. CYMBALTA [Suspect]
     Active Substance: DULOXETINE HYDROCHLORIDE
     Indication: Pain
     Dosage: 60 MG, DAILY
     Route: 048
  2. CYMBALTA [Suspect]
     Active Substance: DULOXETINE HYDROCHLORIDE
     Indication: Depression
     Dosage: 60 MG, DAILY
     Route: 048
     Dates: start: 2015
  3. PROPRANOLOL [Suspect]
     Active Substance: PROPRANOLOL HYDROCHLORIDE
     Indication: Product used for unknown indication
     Dosage: 40 MG, BID, ONE IN THE MORNING AND ONE AT NIGHT
     Route: 065
  4. HBVAXPRO [Suspect]
     Active Substance: HEPATITIS B VIRUS VACCINE
     Indication: Immunisation
     Dosage: UNK UNK, UNKNOWN
     Route: 030
  5. HBVAXPRO [Suspect]
     Active Substance: HEPATITIS B VIRUS VACCINE
     Dosage: UNK UNK, UNKNOWN
     Route: 030
     Dates: start: 1996, end: 1996
  6. HBVAXPRO [Suspect]
     Active Substance: HEPATITIS B VIRUS VACCINE
     Dosage: UNK UNK, UNKNOWN
     Route: 030
     Dates: start: 1997, end: 1997
  7. HBVAXPRO [Suspect]
     Active Substance: HEPATITIS B VIRUS VACCINE
     Dosage: UNK UNK, UNKNOWN
     Route: 030
     Dates: start: 19980326, end: 19980326
  8. GARDASIL [Suspect]
     Active Substance: HUMAN PAPILLOMAVIRUS QUADRIVALENT (TYPES 6, 11, 16, AND 18) VACCINE, RECOMBINANT
     Indication: Immunisation
     Dosage: UNK, UNKNOWN
     Route: 030
     Dates: start: 20110126, end: 20110126
  9. GARDASIL [Suspect]
     Active Substance: HUMAN PAPILLOMAVIRUS QUADRIVALENT (TYPES 6, 11, 16, AND 18) VACCINE, RECOMBINANT
     Dosage: UNK, UNKNOWN
     Route: 030
     Dates: start: 20110323, end: 20110323
  10. GARDASIL [Suspect]
     Active Substance: HUMAN PAPILLOMAVIRUS QUADRIVALENT (TYPES 6, 11, 16, AND 18) VACCINE, RECOMBINANT
     Dosage: UNK UNK, UNKNOWN
     Route: 030
     Dates: start: 20110928, end: 20110928
  11. BOOSTRIX TETRA [Suspect]
     Active Substance: DIPHTHERIA AND TETANUS TOXOIDS AND ACELLULAR PERTUSSIS ADSORBED AND INACTIVATED POLIOVIRUS VACCINE
     Indication: Immunisation
     Dosage: UNK UNK, UNKNOWN
     Route: 030
     Dates: start: 20141227

REACTIONS (51)
  - Myofascitis [Not Recovered/Not Resolved]
  - Chronic fatigue syndrome [Not Recovered/Not Resolved]
  - Bradycardia [Recovered/Resolved]
  - Eye irritation [Unknown]
  - Palpitations [Unknown]
  - Dizziness [Not Recovered/Not Resolved]
  - Headache [Not Recovered/Not Resolved]
  - Feeling cold [Unknown]
  - Fatigue [Not Recovered/Not Resolved]
  - Hypothyroidism [Recovered/Resolved]
  - Feeling hot [Unknown]
  - Serotonin syndrome [Unknown]
  - Generalised tonic-clonic seizure [Unknown]
  - Epilepsy [Unknown]
  - Supraventricular tachycardia [Not Recovered/Not Resolved]
  - Binocular eye movement disorder [Recovering/Resolving]
  - Hormone level abnormal [Unknown]
  - Dyspnoea [Recovered/Resolved]
  - Language disorder [Unknown]
  - Somnambulism [Not Recovered/Not Resolved]
  - Amenorrhoea [Unknown]
  - Ligament sprain [Recovered/Resolved]
  - Odynophagia [Unknown]
  - Influenza [Recovered/Resolved]
  - Sleep disorder [Unknown]
  - Hyperventilation [Unknown]
  - Migraine [Unknown]
  - Somatic symptom disorder [Recovering/Resolving]
  - Migraine with aura [Unknown]
  - Migraine without aura [Unknown]
  - Conjunctivitis [Unknown]
  - Urticaria cholinergic [Unknown]
  - Laryngitis [Unknown]
  - Memory impairment [Unknown]
  - Chest pain [Not Recovered/Not Resolved]
  - Ehlers-Danlos syndrome [Unknown]
  - Depression [Recovering/Resolving]
  - Infectious mononucleosis [Unknown]
  - Bronchitis [Unknown]
  - Varicella [Unknown]
  - Ear infection [Unknown]
  - Asthma [Unknown]
  - Weight increased [Unknown]
  - Fibromyalgia [Unknown]
  - Nightmare [Unknown]
  - Poor quality sleep [Unknown]
  - Dysmenorrhoea [Unknown]
  - Nausea [Not Recovered/Not Resolved]
  - Anxiety [Unknown]
  - Tachycardia [Unknown]
  - Off label use [Unknown]

NARRATIVE: CASE EVENT DATE: 20020101
